FAERS Safety Report 15897303 (Version 1)
Quarter: 2019Q1

REPORT INFORMATION
  Report Type: Report from Study
  Country: US (occurrence: US)
  Receive Date: 20190131
  Receipt Date: 20190131
  Transmission Date: 20190417
  Serious: Yes (Hospitalization)
  Sender: FDA-Public Use
  Company Number: US-INCYTE CORPORATION-2016IN004557

PATIENT

DRUGS (2)
  1. AZACITIDINE. [Suspect]
     Active Substance: AZACITIDINE
     Indication: MYELOFIBROSIS
     Dosage: 25 MG/M2 DAILY FOR 5 DAYS EACH CYCLE
     Route: 058
     Dates: start: 20160620
  2. INCB018424 (RUXOLITINIB) [Suspect]
     Active Substance: RUXOLITINIB
     Indication: MYELOFIBROSIS
     Dosage: 15 MG, BID
     Route: 048
     Dates: start: 20150909

REACTIONS (3)
  - Anaemia [Unknown]
  - Anaemia [Unknown]
  - Lung infection [Unknown]

NARRATIVE: CASE EVENT DATE: 20160720
